APPROVED DRUG PRODUCT: MOMETASONE FUROATE
Active Ingredient: MOMETASONE FUROATE
Strength: 0.1%
Dosage Form/Route: OINTMENT;TOPICAL
Application: A078571 | Product #001
Applicant: GLENMARK PHARMACEUTICALS INC USA
Approved: May 28, 2008 | RLD: No | RS: No | Type: DISCN